FAERS Safety Report 10073329 (Version 1)
Quarter: 2014Q2

REPORT INFORMATION
  Report Type: Spontaneous
  Country: SE (occurrence: SE)
  Receive Date: 20140411
  Receipt Date: 20140411
  Transmission Date: 20141212
  Serious: Yes (Hospitalization)
  Sender: FDA-Public Use
  Company Number: SE-BAYER-2014-052204

PATIENT
  Age: 55 Year
  Sex: Female

DRUGS (12)
  1. ASPIRIN [Suspect]
  2. ACAMPROSATE [Suspect]
     Dosage: 666 MG, TID
     Dates: start: 20130913, end: 20131213
  3. NALTREXONE [Suspect]
     Dosage: UNK
     Dates: start: 20130913, end: 20131213
  4. DICLOFENAC [Suspect]
  5. IDEOS [Concomitant]
  6. BEHEPAN [Concomitant]
  7. FOLACIN [Concomitant]
  8. HYDROCHLOROTHIAZIDE W/LOSARTAN [Concomitant]
  9. PROGYNON [Concomitant]
  10. STILNOCT [Concomitant]
  11. HEMINEVRIN [Concomitant]
  12. ANTABUS [Concomitant]

REACTIONS (8)
  - Nausea [Unknown]
  - Vomiting [Unknown]
  - Hepatitis toxic [Unknown]
  - Headache [Unknown]
  - Jaundice [Unknown]
  - Blood bilirubin increased [Unknown]
  - Liver function test abnormal [Unknown]
  - Gastritis [Unknown]
